FAERS Safety Report 6421688-X (Version None)
Quarter: 2009Q4

REPORT INFORMATION
  Report Type: 
  Country: None (occurrence: None)
  Receive Date: 20091030
  Receipt Date: 20091005
  Transmission Date: 20100525
  Serious: No
  Sender: FDA-Public Use
  Company Number: US-BAYER-200915350BCC

PATIENT
  Age: 36 Year
  Sex: Male
  Weight: 68 kg

DRUGS (1)
  1. ALEVE [Suspect]
     Indication: BACK PAIN
     Dosage: CONSUMER TOOK 8 TO 10 ALEVE (1760 TO 2200 MG)
     Route: 048
     Dates: start: 20091005

REACTIONS (1)
  - NAUSEA [None]
